FAERS Safety Report 25324604 (Version 1)
Quarter: 2025Q2

REPORT INFORMATION
  Report Type: Report from Study
  Country: US (occurrence: US)
  Receive Date: 20250516
  Receipt Date: 20250516
  Transmission Date: 20250716
  Serious: Yes (Other)
  Sender: ABBVIE
  Company Number: US-ABBVIE-6279238

PATIENT
  Age: 72 Year
  Sex: Male

DRUGS (1)
  1. SKYRIZI [Suspect]
     Active Substance: RISANKIZUMAB-RZAA
     Indication: Psoriasis
     Route: 058
     Dates: start: 20240909

REACTIONS (4)
  - Knee arthroplasty [Recovered/Resolved]
  - Arthritis [Recovered/Resolved]
  - Knee arthroplasty [Recovering/Resolving]
  - Pain [Unknown]

NARRATIVE: CASE EVENT DATE: 20250331
